FAERS Safety Report 5638480-6 (Version None)
Quarter: 2008Q1

REPORT INFORMATION
  Report Type: 
  Country: None (occurrence: None)
  Receive Date: 20080226
  Receipt Date: 20070307
  Transmission Date: 20080703
  Serious: No
  Sender: FDA-Public Use
  Company Number: A0634952A

PATIENT
  Age: 49 Year
  Sex: Female

DRUGS (4)
  1. IMITREX [Suspect]
     Indication: MIGRAINE
     Dosage: 1INJ AS REQUIRED
     Route: 058
     Dates: start: 19960101, end: 20070101
  2. IMITREX [Suspect]
     Dosage: 1SPR AS REQUIRED
     Route: 045
     Dates: start: 19960101, end: 19960101
  3. INTERFERON [Concomitant]
  4. DILAUDID [Concomitant]

REACTIONS (4)
  - BRUXISM [None]
  - DRUG INEFFECTIVE [None]
  - EPISTAXIS [None]
  - PHARMACEUTICAL PRODUCT COMPLAINT [None]
